FAERS Safety Report 5702858-2 (Version None)
Quarter: 2008Q2

REPORT INFORMATION
  Report Type: 
  Country: None (occurrence: None)
  Receive Date: 20080410
  Receipt Date: 20080410
  Transmission Date: 20081010
  Serious: Yes (Hospitalization)
  Sender: FDA-Public Use
  Company Number: None

PATIENT
  Sex: Male
  Weight: 92 kg

DRUGS (5)
  1. CYCLOPHOSPHAMIDE [Suspect]
     Dosage: 7020 MG
  2. DACTINOMYCIN [Suspect]
     Dosage: 5 MG
  3. CAMPTOSAR [Suspect]
     Dosage: 1000 MG
  4. MESNA [Suspect]
     Dosage: 4230 MG
  5. VINCRISTINE SULFATE [Suspect]
     Dosage: 25 MG

REACTIONS (10)
  - CONFUSIONAL STATE [None]
  - CONVULSION [None]
  - CSF TEST ABNORMAL [None]
  - ELECTROENCEPHALOGRAM ABNORMAL [None]
  - GLASGOW COMA SCALE ABNORMAL [None]
  - INCOHERENT [None]
  - NYSTAGMUS [None]
  - RESPIRATORY RATE DECREASED [None]
  - VOMITING [None]
  - WEIGHT DECREASED [None]
